FAERS Safety Report 9853369 (Version 1)
Quarter: 2014Q1

REPORT INFORMATION
  Report Type: Spontaneous
  Country: FR (occurrence: FR)
  Receive Date: 20140129
  Receipt Date: 20140129
  Transmission Date: 20141002
  Serious: Yes (Hospitalization)
  Sender: FDA-Public Use
  Company Number: PHHY2014FR009190

PATIENT
  Age: 77 Year
  Sex: Male

DRUGS (6)
  1. PRAVASTATIN SANDOZ [Suspect]
     Indication: CARDIAC FAILURE
     Dosage: 40 MG, QD
     Route: 048
     Dates: end: 20110318
  2. AMLODIPINE SANDOZ [Suspect]
     Dosage: 5 MG, QD
     Route: 048
     Dates: start: 2007, end: 20110319
  3. PREVISCAN//FLUINDIONE [Suspect]
     Indication: ATRIAL FIBRILLATION
     Route: 048
     Dates: start: 2007, end: 20110320
  4. ADANCOR [Suspect]
     Indication: PRODUCT USED FOR UNKNOWN INDICATION
     Dosage: 20 MG, BID
     Route: 048
     Dates: start: 2007, end: 20110319
  5. OMEPRAZOL E [Suspect]
     Indication: PRODUCT USED FOR UNKNOWN INDICATION
     Dosage: 20 MG, QD
     Route: 048
     Dates: start: 2007
  6. AVODART [Suspect]
     Indication: PRODUCT USED FOR UNKNOWN INDICATION
     Dosage: 0.5 MG, QD
     Route: 048
     Dates: start: 2007, end: 20130317

REACTIONS (4)
  - Rhabdomyolysis [Recovered/Resolved with Sequelae]
  - Renal failure [Unknown]
  - Myalgia [Unknown]
  - Dyspnoea [Unknown]
